FAERS Safety Report 5625691-9 (Version None)
Quarter: 2008Q1

REPORT INFORMATION
  Report Type: 
  Country: None (occurrence: None)
  Receive Date: 20080207
  Receipt Date: 20080207
  Transmission Date: 20080703
  Serious: Yes (Other)
  Sender: FDA-Public Use
  Company Number: None

PATIENT
  Age: 16 Year
  Sex: Male
  Weight: 68.0396 kg

DRUGS (2)
  1. DEXAMETHASONE [Suspect]
     Indication: TOOTH EXTRACTION
     Dosage: 8 MG ONCE
     Dates: start: 20080129, end: 20080130
  2. DECADRON [Suspect]

REACTIONS (18)
  - ABNORMAL BEHAVIOUR [None]
  - AGGRESSION [None]
  - ANGER [None]
  - ANOREXIA [None]
  - ANXIETY [None]
  - BIPOLAR DISORDER [None]
  - DEPRESSION [None]
  - ENERGY INCREASED [None]
  - FEELING ABNORMAL [None]
  - HUNGER [None]
  - IMPAIRED DRIVING ABILITY [None]
  - IRRITABILITY [None]
  - MANIA [None]
  - MOOD SWINGS [None]
  - RESTLESSNESS [None]
  - SLEEP DISORDER [None]
  - SPEECH DISORDER [None]
  - TOOTH EXTRACTION [None]
